FAERS Safety Report 12803765 (Version 2)
Quarter: 2016Q4

REPORT INFORMATION
  Report Type: Report from Study
  Country: NL (occurrence: NL)
  Receive Date: 20161003
  Receipt Date: 20161020
  Transmission Date: 20170207
  Serious: Yes (Death, Hospitalization)
  Sender: FDA-Public Use
  Company Number: NL-FERRINGPH-2016FE04240

PATIENT

DRUGS (12)
  1. DEGARELIX [Suspect]
     Active Substance: DEGARELIX
     Dosage: 240 MG, ONCE/SINGLE
     Route: 058
     Dates: start: 20160705
  2. LOSARTAN. [Concomitant]
     Active Substance: LOSARTAN
     Dosage: 1 DF, 1 TIME DAILY
  3. OLANZAPINE. [Concomitant]
     Active Substance: OLANZAPINE
     Dosage: 2 DF, 1 TIME DAILY
  4. ISOSORBIDE DINITRATE. [Concomitant]
     Active Substance: ISOSORBIDE DINITRATE
     Dosage: 1 DF, 1 TIME DAILY SN
     Route: 060
  5. PLANTAGO OVATA [Concomitant]
     Active Substance: PLANTAGO OVATA LEAF
     Dosage: 1 X 1DD + 1 X 1 DD SN
  6. LORAZEPAM. [Concomitant]
     Active Substance: LORAZEPAM
     Dosage: 1 DF, 2 TIMES DAILY IF NECESSARY
  7. TRAMADOLE [Concomitant]
     Dosage: 3 DF, 1 TIME DAILY
  8. FUROSEMIDE. [Concomitant]
     Active Substance: FUROSEMIDE
     Dosage: 1 DF, 1 TIME DAILY
  9. DEGARELIX [Suspect]
     Active Substance: DEGARELIX
     Indication: PROSTATE CANCER
     Dosage: 80 MG, MONTHLY
     Route: 058
     Dates: end: 20160923
  10. APIXABAN [Concomitant]
     Active Substance: APIXABAN
  11. PANTOPRAZOLE [Concomitant]
     Active Substance: PANTOPRAZOLE SODIUM
     Dosage: 1 DF, 1 TIME DAILY
  12. PARACETAMOL [Concomitant]
     Active Substance: ACETAMINOPHEN
     Dosage: 3 DF, 2 TIMES DAILY

REACTIONS (3)
  - Cardiac arrest [Fatal]
  - Arrhythmia [Fatal]
  - Blood urine present [Unknown]

NARRATIVE: CASE EVENT DATE: 20160820
